FAERS Safety Report 6960139-3 (Version None)
Quarter: 2010Q3

REPORT INFORMATION
  Report Type: 
  Country: None (occurrence: None)
  Receive Date: 20100823
  Receipt Date: 20100709
  Transmission Date: 20110219
  Serious: No
  Sender: FDA-Public Use
  Company Number: 015332

PATIENT
  Sex: Female
  Weight: 57 kg

DRUGS (3)
  1. CIMZIA [Suspect]
     Indication: CROHN'S DISEASE
     Dosage: (400 MG, EVERY MONTH SUBCUTANEOUS)
     Route: 058
     Dates: start: 20091001
  2. ACTOS [Concomitant]
  3. LOTENSIN /00909102/ [Concomitant]

REACTIONS (3)
  - ARTHRITIS [None]
  - DIARRHOEA [None]
  - SWELLING FACE [None]
